FAERS Safety Report 6056643-5 (Version None)
Quarter: 2009Q1

REPORT INFORMATION
  Report Type: 
  Country: None (occurrence: None)
  Receive Date: 20090129
  Receipt Date: 20090119
  Transmission Date: 20090719
  Serious: Yes (Other)
  Sender: FDA-Public Use
  Company Number: US-PFIZER INC-2009157027

PATIENT
  Age: 15 Year
  Sex: Male

DRUGS (8)
  1. HYDROCORTISONE [Suspect]
     Indication: LYMPHOCYTIC LEUKAEMIA
  2. METHOTREXATE SODIUM [Suspect]
     Indication: LYMPHOCYTIC LEUKAEMIA
  3. CYTARABINE [Suspect]
     Indication: LYMPHOCYTIC LEUKAEMIA
  4. TOPOTECAN [Suspect]
     Indication: LYMPHOCYTIC LEUKAEMIA
  5. FLUDARABINE PHOSPHATE [Suspect]
     Indication: BONE MARROW TRANSPLANT
  6. THIOTEPA [Suspect]
     Indication: BONE MARROW TRANSPLANT
  7. MELPHALAN HYDROCHLORIDE [Suspect]
     Indication: BONE MARROW TRANSPLANT
  8. ORTHOCLONE OKT3 [Suspect]
     Indication: BONE MARROW TRANSPLANT

REACTIONS (2)
  - LEUKOENCEPHALOPATHY [None]
  - MYELOPATHY [None]
